FAERS Safety Report 9450560 (Version 1)
Quarter: 2013Q3

REPORT INFORMATION
  Report Type: Report from Study
  Country: AU (occurrence: AU)
  Receive Date: 20130809
  Receipt Date: 20130809
  Transmission Date: 20140515
  Serious: Yes (Other)
  Sender: FDA-Public Use
  Company Number: AU-PFIZER INC-2013227946

PATIENT
  Age: 11 Year
  Sex: 0

DRUGS (7)
  1. ADRIAMYCIN [Suspect]
     Indication: HODGKIN^S DISEASE
     Dosage: 6 CYCLES
  2. CYCLOPHOSPHAMIDE [Suspect]
     Indication: HODGKIN^S DISEASE
     Dosage: 6 CYCLES
  3. ETOPOSIDE [Suspect]
     Indication: HODGKIN^S DISEASE
     Dosage: 6 CYCLES
  4. VINCRISTINE SULFATE [Suspect]
     Indication: HODGKIN^S DISEASE
     Dosage: 6 CYCLES
  5. BLEOMYCIN [Suspect]
     Indication: HODGKIN^S DISEASE
     Dosage: 6 CYCLES
  6. PREDNISOLONE [Suspect]
     Indication: HODGKIN^S DISEASE
     Dosage: 6 CYCLES, 3,360 MG/M2 CUMULATIVE
  7. PROCARBAZINE [Suspect]
     Indication: HODGKIN^S DISEASE
     Dosage: 6 CYCLES

REACTIONS (1)
  - Osteonecrosis [Recovered/Resolved]
